FAERS Safety Report 10881765 (Version 1)
Quarter: 2015Q1

REPORT INFORMATION
  Report Type: Spontaneous
  Country: US (occurrence: US)
  Receive Date: 20150303
  Receipt Date: 20150303
  Transmission Date: 20150721
  Serious: Yes (Death, Other)
  Sender: FDA-Public Use
  Company Number: US-CIPLA LTD.-2015US01426

PATIENT

DRUGS (1)
  1. DONEPEZIL [Suspect]
     Active Substance: DONEPEZIL
     Indication: DEMENTIA
     Dosage: 10 MG, QD

REACTIONS (5)
  - Hypercholesterolaemia [Unknown]
  - Frontotemporal dementia [None]
  - Delirium [None]
  - Hypertriglyceridaemia [Unknown]
  - Neurological decompensation [Fatal]
